FAERS Safety Report 9691666 (Version 2)
Quarter: 2013Q4

REPORT INFORMATION
  Report Type: Spontaneous
  Country: CA (occurrence: CA)
  Receive Date: 20131115
  Receipt Date: 20131115
  Transmission Date: 20140711
  Serious: Yes (Hospitalization)
  Sender: FDA-Public Use
  Company Number: CA-BAXTER-2013BAX035297

PATIENT
  Age: 58 Year
  Sex: Female

DRUGS (2)
  1. DIANEAL PD4 SOLUTION WITH 2.5% DEXTROSE AND 2.5 MEQ/L CALCIUM [Suspect]
     Indication: KIDNEY TRANSPLANT REJECTION
     Route: 033
     Dates: start: 201201
  2. EXTRANEAL [Suspect]
     Indication: KIDNEY TRANSPLANT REJECTION
     Route: 033
     Dates: start: 201201

REACTIONS (3)
  - Foot fracture [Unknown]
  - Ligament injury [Recovering/Resolving]
  - Blood calcium decreased [Not Recovered/Not Resolved]
